FAERS Safety Report 5836501-9 (Version None)
Quarter: 2008Q3

REPORT INFORMATION
  Report Type: 
  Country: None (occurrence: None)
  Receive Date: 20080806
  Receipt Date: 20080806
  Transmission Date: 20090109
  Serious: Yes (Hospitalization)
  Sender: FDA-Public Use
  Company Number: None

PATIENT
  Age: 78 Year
  Sex: Male
  Weight: 74.64 kg

DRUGS (2)
  1. CLONAZEPAM [Suspect]
     Dosage: 0.5 MG TID PO
     Route: 048
     Dates: start: 20080207, end: 20080418
  2. QUETIAPINE [Suspect]
     Dosage: 50 MG EVERY DAY PO
     Route: 048
     Dates: start: 20080207, end: 20080418

REACTIONS (3)
  - CONFUSIONAL STATE [None]
  - LETHARGY [None]
  - MENTAL STATUS CHANGES [None]
